FAERS Safety Report 5657415-3 (Version None)
Quarter: 2008Q1

REPORT INFORMATION
  Report Type: 
  Country: None (occurrence: None)
  Receive Date: 20080310
  Receipt Date: 20080303
  Transmission Date: 20080703
  Serious: Yes (Life-Threatening, Hospitalization)
  Sender: FDA-Public Use
  Company Number: FR-WYE-H02984908

PATIENT
  Age: 55 Year
  Sex: Female

DRUGS (1)
  1. OROKEN [Suspect]
     Indication: VAGINAL INFECTION
     Dosage: 400MG DAILY
     Route: 048
     Dates: start: 20071229, end: 20071229

REACTIONS (3)
  - DYSPNOEA [None]
  - FIBRIN D DIMER INCREASED [None]
  - NAUSEA [None]
